FAERS Safety Report 5815080-6 (Version None)
Quarter: 2008Q3

REPORT INFORMATION
  Report Type: 
  Country: None (occurrence: None)
  Receive Date: 20080718
  Receipt Date: 20080131
  Transmission Date: 20090109
  Serious: Yes (Death)
  Sender: FDA-Public Use
  Company Number: GB-AMGEN-UK293508

PATIENT
  Sex: Female
  Weight: 91 kg

DRUGS (11)
  1. KINERET [Suspect]
     Indication: RHEUMATOID ARTHRITIS
     Dates: start: 20060607
  2. PREDNISOLONE [Concomitant]
  3. NOVOLOG MIX 70/30 [Concomitant]
  4. NOVORAPID [Concomitant]
  5. BENDROFLUAZIDE [Concomitant]
  6. AMITRIPTYLINE HCL [Concomitant]
  7. DIDRONEL [Concomitant]
  8. MEPTAZINOL [Concomitant]
  9. OMEPRAZOLE [Concomitant]
  10. ACETAMINOPHEN [Concomitant]
  11. ROFEXOCIB [Concomitant]

REACTIONS (3)
  - DIABETES MELLITUS [None]
  - LOWER RESPIRATORY TRACT INFECTION [None]
  - PULMONARY FIBROSIS [None]
